FAERS Safety Report 11230151 (Version 1)
Quarter: 2015Q3

REPORT INFORMATION
  Report Type: Spontaneous
  Country: VE (occurrence: VE)
  Receive Date: 20150701
  Receipt Date: 20150701
  Transmission Date: 20151125
  Serious: Yes (Other)
  Sender: FDA-Public Use
  Company Number: VE-ROCHE-1601035

PATIENT
  Sex: Male

DRUGS (1)
  1. LUCENTIS [Suspect]
     Active Substance: RANIBIZUMAB
     Indication: PRODUCT USED FOR UNKNOWN INDICATION
     Route: 050
     Dates: start: 201306

REACTIONS (5)
  - Vascular rupture [Unknown]
  - Diabetes mellitus [Unknown]
  - Visual impairment [Unknown]
  - Cataract [Unknown]
  - Hypertension [Unknown]
